FAERS Safety Report 5708830-0 (Version None)
Quarter: 2008Q2

REPORT INFORMATION
  Report Type: 
  Country: None (occurrence: None)
  Receive Date: 20080416
  Receipt Date: 20080404
  Transmission Date: 20081010
  Serious: Yes (Hospitalization)
  Sender: FDA-Public Use
  Company Number: 2007BI000878

PATIENT
  Age: 49 Year
  Sex: Female

DRUGS (3)
  1. AVONEX [Suspect]
     Indication: MULTIPLE SCLEROSIS
     Dosage: 30 UG; QW; IM
     Route: 030
     Dates: start: 20031217
  2. FAMVIR [Concomitant]
  3. BACLOFEN [Concomitant]

REACTIONS (6)
  - BLOOD DISORDER [None]
  - COLORECTAL CANCER [None]
  - EPSTEIN-BARR VIRUS ANTIGEN POSITIVE [None]
  - METASTASES TO LYMPH NODES [None]
  - POST PROCEDURAL INFECTION [None]
  - TUMOUR INVASION [None]
